FAERS Safety Report 4371005-4 (Version None)
Quarter: 2004Q2

REPORT INFORMATION
  Report Type: 
  Country: None (occurrence: None)
  Receive Date: 20040603
  Receipt Date: 20040603
  Transmission Date: 20050107
  Serious: Yes (Hospitalization)
  Sender: FDA-Public Use
  Company Number: None

PATIENT
  Age: 74 Year
  Sex: Male
  Weight: 63.6 kg

DRUGS (5)
  1. AVASTIN [Suspect]
     Indication: NON-SMALL CELL LUNG CANCER
     Dosage: IVPB Q 3 WEEKS
     Route: 042
     Dates: start: 20040309
  2. AVASTIN [Suspect]
     Indication: NON-SMALL CELL LUNG CANCER
     Dosage: IVPB Q 3 WEEKS
     Route: 042
     Dates: start: 20040329
  3. AVASTIN [Suspect]
     Indication: NON-SMALL CELL LUNG CANCER
     Dosage: IVPB Q 3 WEEKS
     Route: 042
     Dates: start: 20040419
  4. AVASTIN [Suspect]
     Indication: NON-SMALL CELL LUNG CANCER
     Dosage: IVPB Q 3 WEEKS
     Route: 042
     Dates: start: 20040510
  5. IRESSA [Concomitant]

REACTIONS (1)
  - CEREBROVASCULAR ACCIDENT [None]
